FAERS Safety Report 9334956 (Version 1)
Quarter: 2013Q2

REPORT INFORMATION
  Report Type: Spontaneous
  Country: US (occurrence: US)
  Receive Date: 20130606
  Receipt Date: 20130606
  Transmission Date: 20140414
  Serious: No
  Sender: FDA-Public Use
  Company Number: US-AMGEN-USASP2013032329

PATIENT
  Age: 80 Year
  Sex: Female
  Weight: 94.33 kg

DRUGS (6)
  1. PROLIA [Suspect]
     Indication: OSTEOPOROSIS POSTMENOPAUSAL
     Dosage: 1 ML, Q6MO
     Route: 058
     Dates: start: 20121106, end: 20130507
  2. MOBIC [Concomitant]
     Indication: ARTHRITIS
     Dosage: 15 MG, QD
     Route: 048
  3. REQUIP [Concomitant]
     Indication: RESTLESS LEGS SYNDROME
     Dosage: 1 MG, BID
  4. KEFLEX                             /00145501/ [Concomitant]
     Indication: OSTEOMYELITIS
     Dosage: 500 MG, UNK
     Route: 048
  5. LISINOPRIL [Concomitant]
     Indication: HYPERTENSION
     Dosage: 20/25
     Route: 048
  6. MULTIVITAMIN                       /00097801/ [Concomitant]

REACTIONS (6)
  - Hypoaesthesia [Recovered/Resolved]
  - Bursitis [Unknown]
  - Pain [Unknown]
  - Musculoskeletal pain [Unknown]
  - Arthralgia [Unknown]
  - Myalgia [Recovered/Resolved]
